FAERS Safety Report 25096407 (Version 2)
Quarter: 2025Q2

REPORT INFORMATION
  Report Type: Spontaneous
  Country: US (occurrence: US)
  Receive Date: 20250319
  Receipt Date: 20250422
  Transmission Date: 20250716
  Serious: Yes (Other)
  Sender: PFIZER
  Company Number: US-PFIZER INC-PV202500032626

PATIENT
  Age: 57 Year
  Sex: Male

DRUGS (1)
  1. INLYTA [Suspect]
     Active Substance: AXITINIB

REACTIONS (9)
  - Blood pressure increased [Recovering/Resolving]
  - Product dose omission issue [Recovering/Resolving]
  - Appetite disorder [Unknown]
  - Oropharyngeal pain [Recovering/Resolving]
  - Blood pressure diastolic increased [Unknown]
  - Fatigue [Unknown]
  - Aphonia [Recovering/Resolving]
  - Liver disorder [Recovering/Resolving]
  - Blood albumin abnormal [Recovering/Resolving]

NARRATIVE: CASE EVENT DATE: 20250101
